FAERS Safety Report 4783507-7 (Version None)
Quarter: 2005Q3

REPORT INFORMATION
  Report Type: 
  Country: None (occurrence: None)
  Receive Date: 20050928
  Receipt Date: 20050928
  Transmission Date: 20060218
  Serious: Yes (Disabling)
  Sender: FDA-Public Use
  Company Number: None

PATIENT
  Sex: Female
  Weight: 136.0791 kg

DRUGS (18)
  1. EFFEXOR [Suspect]
     Indication: BIPOLAR II DISORDER
     Dosage: 75MG 3 TIMES PER DAY PO
     Route: 048
     Dates: start: 19990101, end: 20031001
  2. EFFEXOR [Suspect]
     Indication: DEPRESSION
     Dosage: 75MG 3 TIMES PER DAY PO
     Route: 048
     Dates: start: 19990101, end: 20031001
  3. CLONAZEPAM [Concomitant]
  4. SYNTHROID [Concomitant]
  5. NEXIUM [Concomitant]
  6. LITHIUM [Concomitant]
  7. DEPAKOTE [Concomitant]
  8. MAVIK [Concomitant]
  9. VANCENASE [Concomitant]
  10. ZANTAC [Concomitant]
  11. PREVACID [Concomitant]
  12. ARICEPT [Concomitant]
  13. VIOXX [Concomitant]
  14. NSAIDS [Concomitant]
  15. DIOVAN [Concomitant]
  16. STEROIDS [Concomitant]
  17. ANTIBIOTICS [Concomitant]
  18. CODEINE [Concomitant]

REACTIONS (3)
  - DRUG WITHDRAWAL SYNDROME [None]
  - FEELING ABNORMAL [None]
  - SUICIDAL IDEATION [None]
